FAERS Safety Report 15586871 (Version 1)
Quarter: 2018Q4

REPORT INFORMATION
  Report Type: Spontaneous
  Country: US (occurrence: US)
  Receive Date: 20181102
  Receipt Date: 20181102
  Transmission Date: 20190205
  Serious: No
  Sender: FDA-Public Use
  Company Number: None

PATIENT
  Age: 26 Year
  Sex: Female
  Weight: 86.18 kg

DRUGS (2)
  1. TALTZ [Suspect]
     Active Substance: IXEKIZUMAB
     Indication: PSORIASIS
     Dosage: OTHER FREQUENCY:WK12/THEN MONTHLY;?
     Route: 058
     Dates: start: 201809
  2. TALTZ [Suspect]
     Active Substance: IXEKIZUMAB
     Indication: GUTTATE PSORIASIS
     Dosage: OTHER FREQUENCY:WK12/THEN MONTHLY;?
     Route: 058
     Dates: start: 201809

REACTIONS (2)
  - Peripheral swelling [None]
  - Fungal infection [None]
